FAERS Safety Report 7146637-0 (Version None)
Quarter: 2010Q4

REPORT INFORMATION
  Report Type: 
  Country: None (occurrence: None)
  Receive Date: 20101208
  Receipt Date: 20101130
  Transmission Date: 20110411
  Serious: Yes (Hospitalization)
  Sender: FDA-Public Use
  Company Number: JP-ELI_LILLY_AND_COMPANY-JP201012000008

PATIENT
  Age: 50 Year
  Sex: Female
  Weight: 36.8 kg

DRUGS (8)
  1. PEMETREXED [Suspect]
     Indication: LUNG ADENOCARCINOMA STAGE IV
     Dosage: UNK, OTHER
     Route: 042
     Dates: start: 20091127
  2. CISPLATIN [Concomitant]
     Indication: LUNG ADENOCARCINOMA STAGE IV
     Dosage: UNK, OTHER
     Route: 042
     Dates: start: 20091127, end: 20091127
  3. PANVITAN [Concomitant]
     Dosage: 0.5 MG, DAILY (1/D)
     Route: 048
     Dates: start: 20091116, end: 20100309
  4. HYDROXOCOBALAMIN [Concomitant]
     Dosage: 1 MG, UNK
     Route: 030
     Dates: start: 20091116, end: 20100120
  5. DECADRON [Concomitant]
     Route: 065
     Dates: start: 20091127
  6. GRANISETRON HCL [Concomitant]
     Route: 065
     Dates: start: 20090101
  7. CALONAL [Concomitant]
     Indication: CANCER PAIN
     Route: 065
     Dates: start: 20091111
  8. NAIXAN                             /00256202/ [Concomitant]
     Indication: PYREXIA
     Route: 065
     Dates: start: 20091117, end: 20091127

REACTIONS (1)
  - GASTROINTESTINAL DISORDER [None]
